FAERS Safety Report 5218090-5 (Version None)
Quarter: 2007Q1

REPORT INFORMATION
  Report Type: 
  Country: None (occurrence: None)
  Receive Date: 20061130
  Receipt Date: 20060629
  Transmission Date: 20070707
  Serious: Yes (Hospitalization)
  Sender: FDA-Public Use
  Company Number: US200605004047

PATIENT
  Age: 51 Year
  Sex: Male
  Weight: 108.8 kg

DRUGS (4)
  1. ZYPREXA [Suspect]
     Indication: HALLUCINATION, AUDITORY
     Dosage: SEE IMAGE
     Dates: start: 20010828, end: 20021231
  2. BUPROPION HCL [Concomitant]
  3. SEROQUEL [Concomitant]
  4. GEODON [Concomitant]

REACTIONS (8)
  - DIABETES MELLITUS [None]
  - HEPATITIS VIRAL [None]
  - HYPERGLYCAEMIA [None]
  - HYPERTENSION [None]
  - HYPOGLYCAEMIA [None]
  - PANCREATITIS [None]
  - POLYDIPSIA [None]
  - VISION BLURRED [None]
